FAERS Safety Report 22241478 (Version 2)
Quarter: 2024Q1

REPORT INFORMATION
  Report Type: Spontaneous
  Country: US (occurrence: US)
  Receive Date: 20230421
  Receipt Date: 20240221
  Transmission Date: 20240410
  Serious: Yes (Other)
  Sender: FDA-Public Use
  Company Number: US-002147023-NVSC2023US087541

PATIENT
  Sex: Male

DRUGS (4)
  1. PEMETREXED [Suspect]
     Active Substance: PEMETREXED
     Indication: Medulloblastoma recurrent
     Dosage: UNK
     Route: 065
  2. CYCLOPHOSPHAMIDE [Suspect]
     Active Substance: CYCLOPHOSPHAMIDE
     Indication: Medulloblastoma recurrent
     Dosage: UNK
     Route: 065
  3. CISPLATIN [Suspect]
     Active Substance: CISPLATIN
     Indication: Medulloblastoma recurrent
     Dosage: UNK
     Route: 065
  4. GEMCITABINE [Suspect]
     Active Substance: GEMCITABINE
     Indication: Medulloblastoma recurrent
     Dosage: UNK
     Route: 065

REACTIONS (10)
  - Medulloblastoma recurrent [Unknown]
  - Nausea [Unknown]
  - Vomiting [Unknown]
  - Dysmetria [Unknown]
  - Cerebral disorder [Unknown]
  - Spinal disorder [Unknown]
  - Decreased appetite [Unknown]
  - Strabismus [Unknown]
  - Ataxia [Unknown]
  - Off label use [Unknown]
